FAERS Safety Report 9471374 (Version 1)
Quarter: 2013Q3

REPORT INFORMATION
  Report Type: Spontaneous
  Country: FR (occurrence: FR)
  Receive Date: 20130822
  Receipt Date: 20130822
  Transmission Date: 20140515
  Serious: Yes (Hospitalization)
  Sender: FDA-Public Use
  Company Number: FR-UCBSA-095511

PATIENT
  Age: 62 Year
  Sex: Female

DRUGS (4)
  1. KEPPRA [Suspect]
     Indication: PROPHYLAXIS
     Dosage: UNKNOWN DOSE
     Route: 048
     Dates: start: 201010
  2. FLIXOTIDE [Interacting]
     Indication: COUGH
     Dosage: UNKNOWN DOSE
     Route: 055
  3. KIVEXA [Suspect]
     Indication: HIV INFECTION
     Dosage: UNKNOWN DOSE; 1/DAY
     Route: 048
     Dates: start: 20061220
  4. KALETRA [Interacting]
     Indication: HIV INFECTION
     Dosage: UNKNOWN DOSE; 1/DAY
     Route: 048
     Dates: start: 20060103, end: 20130702

REACTIONS (2)
  - Cushing^s syndrome [Recovered/Resolved]
  - Myalgia [Recovered/Resolved]
